FAERS Safety Report 25862065 (Version 1)
Quarter: 2025Q3

REPORT INFORMATION
  Report Type: Spontaneous
  Country: EU (occurrence: EU)
  Receive Date: 20250930
  Receipt Date: 20250930
  Transmission Date: 20251020
  Serious: Yes (Other)
  Sender: AMGEN
  Company Number: EU-AMGEN-FRASP2025190422

PATIENT
  Age: 25 Year
  Sex: Female

DRUGS (2)
  1. UPLIZNA [Suspect]
     Active Substance: INEBILIZUMAB-CDON
     Indication: Neuromyelitis optica spectrum disorder
     Route: 065
     Dates: start: 20230716
  2. UPLIZNA [Suspect]
     Active Substance: INEBILIZUMAB-CDON
     Dosage: UNK, Q6MO
     Route: 065
     Dates: start: 2024, end: 2024

REACTIONS (5)
  - Optic neuritis [Unknown]
  - Rash [Unknown]
  - Irritability [Unknown]
  - Muscle spasms [Unknown]
  - Sleep disorder [Unknown]
